FAERS Safety Report 21997389 (Version 4)
Quarter: 2023Q1

REPORT INFORMATION
  Report Type: Spontaneous
  Country: US (occurrence: US)
  Receive Date: 20230216
  Receipt Date: 20230303
  Transmission Date: 20230417
  Serious: No
  Sender: FDA-Public Use
  Company Number: US-UNITED THERAPEUTICS-UNT-2023-003943

PATIENT
  Age: 76 Year
  Sex: Female
  Weight: 89.342 kg

DRUGS (6)
  1. TYVASO DPI [Suspect]
     Active Substance: TREPROSTINIL
     Indication: Pulmonary arterial hypertension
     Dosage: 16 ?G, QID
     Dates: start: 202302
  2. TYVASO DPI [Suspect]
     Active Substance: TREPROSTINIL
     Dosage: 48 ?G, QID
  3. TYVASO DPI [Suspect]
     Active Substance: TREPROSTINIL
     Dosage: UNK
     Dates: start: 20230201
  4. TYVASO DPI [Suspect]
     Active Substance: TREPROSTINIL
     Indication: Pulmonary arterial hypertension
     Dosage: UNK
  5. TYVASO DPI [Suspect]
     Active Substance: TREPROSTINIL
     Indication: Pulmonary arterial hypertension
     Dosage: UNK
  6. ESBRIET [Concomitant]
     Active Substance: PIRFENIDONE
     Indication: Product used for unknown indication
     Dosage: UNK
     Route: 065

REACTIONS (14)
  - Vision blurred [Unknown]
  - Dizziness [Unknown]
  - Oropharyngeal pain [Unknown]
  - Head discomfort [Unknown]
  - Musculoskeletal discomfort [Unknown]
  - Feeling abnormal [Unknown]
  - Hypoacusis [Not Recovered/Not Resolved]
  - Throat irritation [Unknown]
  - Productive cough [Unknown]
  - Fatigue [Unknown]
  - Exercise tolerance decreased [Unknown]
  - Headache [Unknown]
  - Cough [Unknown]
  - Therapy non-responder [Unknown]

NARRATIVE: CASE EVENT DATE: 20230201
